FAERS Safety Report 4346784-2 (Version None)
Quarter: 2004Q1

REPORT INFORMATION
  Report Type: 
  Country: None (occurrence: None)
  Receive Date: 20040325
  Receipt Date: 20040120
  Transmission Date: 20041129
  Serious: No
  Sender: FDA-Public Use
  Company Number: USA030740694

PATIENT
  Age: 80 Year
  Sex: Female
  Weight: 49 kg

DRUGS (9)
  1. FORTEO [Suspect]
     Indication: OSTEOPOROSIS
     Dosage: 20 UG/DAY
     Dates: start: 20030627
  2. ASPIRIN [Concomitant]
  3. PLAVIX [Concomitant]
  4. ZOCOR [Concomitant]
  5. METOPROLOL [Concomitant]
  6. ESTROGEN NOS [Concomitant]
  7. PROVERA [Concomitant]
  8. PAXIL [Concomitant]
  9. ACTONEL [Concomitant]

REACTIONS (2)
  - INJECTION SITE HAEMORRHAGE [None]
  - INJECTION SITE SWELLING [None]
